FAERS Safety Report 25533884 (Version 1)
Quarter: 2025Q3

REPORT INFORMATION
  Report Type: Spontaneous
  Country: US (occurrence: US)
  Receive Date: 20250709
  Receipt Date: 20250709
  Transmission Date: 20251020
  Serious: No
  Sender: LUPIN
  Company Number: US-LUPIN PHARMACEUTICALS INC.-2025-05828

PATIENT

DRUGS (4)
  1. TOLVAPTAN [Suspect]
     Active Substance: TOLVAPTAN
     Indication: Congenital cystic kidney disease
     Dosage: UNK, QD, TAKE 45 MG BY MOUTH EVERY MORNING AND 15 MG BY MOUTH 8 HOURS LATER EVERY DAY
  2. TOLVAPTAN [Suspect]
     Active Substance: TOLVAPTAN
     Indication: Congenital cystic kidney disease
     Dosage: UNK, QD, TAKE 45 MG BY MOUTH EVERY MORNING AND 15 MG BY MOUTH 8 HOURS LATER EVERY DAY
  3. ACCRUFER [Concomitant]
     Active Substance: FERRIC MALTOL
     Indication: Product used for unknown indication
     Route: 065
  4. JYNARQUE [Concomitant]
     Active Substance: TOLVAPTAN
     Indication: Product used for unknown indication
     Route: 065

REACTIONS (2)
  - Pain in extremity [Not Recovered/Not Resolved]
  - Dyspnoea [Not Recovered/Not Resolved]
